FAERS Safety Report 18683194 (Version 1)
Quarter: 2020Q4

REPORT INFORMATION
  Report Type: Spontaneous
  Country: US (occurrence: US)
  Receive Date: 20201230
  Receipt Date: 20201230
  Transmission Date: 20210114
  Serious: Yes (Life-Threatening, Hospitalization)
  Sender: FDA-Public Use
  Company Number: US-MYLANLABS-2020M1105191

PATIENT
  Age: 52 Year
  Sex: Female

DRUGS (9)
  1. CYCLOPHOSPHAMIDE. [Concomitant]
     Active Substance: CYCLOPHOSPHAMIDE
     Indication: TRIPLE NEGATIVE BREAST CANCER
     Dosage: 600 MILLIGRAM/SQ. METER, CYCLE....
  2. CYCLOPHOSPHAMIDE. [Concomitant]
     Active Substance: CYCLOPHOSPHAMIDE
     Indication: BREAST CANCER STAGE II
  3. DEXRAZOXANE. [Suspect]
     Active Substance: DEXRAZOXANE
     Indication: CHEMOTHERAPY EXTRAVASATION MANAGEMENT
     Dosage: 1000 MILLIGRAM/SQ. METER, CYCLE,ON...
     Route: 042
  4. FILGRASTIM [Concomitant]
     Active Substance: FILGRASTIM
     Indication: PROPHYLAXIS
     Dosage: ON POST-CHEMOHERAPY 2, 3
     Route: 065
  5. FILGRASTIM [Concomitant]
     Active Substance: FILGRASTIM
     Indication: NEUTROPENIA
  6. DEXRAZOXANE. [Suspect]
     Active Substance: DEXRAZOXANE
     Dosage: 500 MILLIGRAM/SQ. METER, CYCLE,ON...
     Route: 042
  7. DOXORUBICIN [Suspect]
     Active Substance: DOXORUBICIN
     Indication: BREAST CANCER STAGE II
  8. NORMAL SALINE [Concomitant]
     Active Substance: SODIUM CHLORIDE
     Indication: PRODUCT USED FOR UNKNOWN INDICATION
     Dosage: FOR FLUSHING OF ADMINISTRATION...
     Route: 065
  9. DOXORUBICIN [Suspect]
     Active Substance: DOXORUBICIN
     Indication: TRIPLE NEGATIVE BREAST CANCER
     Dosage: 60 MILLIGRAM/SQ. METER, CYCLE....

REACTIONS (6)
  - Condition aggravated [Recovering/Resolving]
  - Hypotension [Unknown]
  - Pleural effusion [Recovering/Resolving]
  - Neutropenia [Unknown]
  - Administration site extravasation [Recovering/Resolving]
  - Syncope [Unknown]
